FAERS Safety Report 14324826 (Version 1)
Quarter: 2017Q4

REPORT INFORMATION
  Report Type: Report from Study
  Country: US (occurrence: US)
  Receive Date: 20171226
  Receipt Date: 20171226
  Transmission Date: 20180321
  Serious: Yes (Other)
  Sender: FDA-Public Use
  Company Number: US-CLOVIS ONCOLOGY-CLO-2017-001280

PATIENT
  Age: 43 Year
  Sex: Female

DRUGS (2)
  1. RUBRACA [Suspect]
     Active Substance: RUCAPARIB CAMSYLATE
     Dosage: DOSE REDUCED
     Dates: start: 201709
  2. RUBRACA [Suspect]
     Active Substance: RUCAPARIB CAMSYLATE
     Indication: OVARIAN CANCER
     Dosage: UNK
     Dates: start: 201709

REACTIONS (5)
  - Febrile neutropenia [Unknown]
  - Malignant neoplasm progression [Unknown]
  - Oral disorder [Unknown]
  - Infection [Unknown]
  - Adverse event [Unknown]

NARRATIVE: CASE EVENT DATE: 201709
